FAERS Safety Report 21816956 (Version 1)
Quarter: 2023Q1

REPORT INFORMATION
  Report Type: Spontaneous
  Country: US (occurrence: None)
  Receive Date: 20230103
  Receipt Date: 20230103
  Transmission Date: 20230417
  Serious: Yes (Death)
  Sender: FDA-Public Use
  Company Number: None

PATIENT
  Age: 87 Year
  Sex: Female
  Weight: 65.25 kg

DRUGS (10)
  1. POMALYST [Suspect]
     Active Substance: POMALIDOMIDE
     Indication: Plasma cell myeloma
     Dosage: FREQUENCY : DAILY;?
     Route: 048
     Dates: start: 20210107, end: 20221227
  2. ACYCLOVIR [Concomitant]
     Active Substance: ACYCLOVIR
  3. AMIODARONE [Concomitant]
     Active Substance: AMIODARONE
  4. calcitrol 0.25mcg [Concomitant]
  5. DEXAMETHASONE [Concomitant]
     Active Substance: DEXAMETHASONE
  6. ELIQUIS [Concomitant]
     Active Substance: APIXABAN
  7. ixazomib 2.3mg [Concomitant]
  8. KLOR-CON M20 [Concomitant]
     Active Substance: POTASSIUM CHLORIDE
  9. NINLARO [Concomitant]
     Active Substance: IXAZOMIB CITRATE
  10. ROSUVASTATIN [Concomitant]
     Active Substance: ROSUVASTATIN

REACTIONS (1)
  - Death [None]

NARRATIVE: CASE EVENT DATE: 20221227
